FAERS Safety Report 7732451-1 (Version None)
Quarter: 2011Q3

REPORT INFORMATION
  Report Type: 
  Country: None (occurrence: None)
  Receive Date: 20110906
  Receipt Date: 20110823
  Transmission Date: 20111222
  Serious: Yes (Death, Hospitalization)
  Sender: FDA-Public Use
  Company Number: KR-ELI_LILLY_AND_COMPANY-KR201106008376

PATIENT
  Sex: Female
  Weight: 57 kg

DRUGS (2)
  1. CYMBALTA [Suspect]
     Indication: DEPRESSION
     Dosage: 60 MG, EACH EVENING
     Route: 048
     Dates: start: 20110503, end: 20110527
  2. AMITRIPTYLINE HCL [Concomitant]
     Indication: DEPRESSION
     Dosage: 10 MG, UNK
     Dates: start: 20110503, end: 20110527

REACTIONS (2)
  - COMPLETED SUICIDE [None]
  - HOSPITALISATION [None]
